FAERS Safety Report 5475974-0 (Version None)
Quarter: 2007Q4

REPORT INFORMATION
  Report Type: 
  Country: None (occurrence: None)
  Receive Date: 20071003
  Receipt Date: 20070924
  Transmission Date: 20080405
  Serious: Yes (Other)
  Sender: FDA-Public Use
  Company Number: US-ELI_LILLY_AND_COMPANY-US200708003179

PATIENT
  Age: 50 Year
  Sex: Female
  Weight: 63.492 kg

DRUGS (3)
  1. GEMZAR [Suspect]
     Indication: OVARIAN CANCER
     Dosage: 1200 MG, OTHER
     Route: 065
     Dates: start: 20070625
  2. ATIVAN [Concomitant]
     Indication: INSOMNIA
     Dosage: UNK, EACH EVENING
  3. ADVIL                              /00109201/ [Concomitant]
     Indication: HEADACHE
     Dosage: UNK, AS NEEDED

REACTIONS (5)
  - FATIGUE [None]
  - MUSCLE SPASMS [None]
  - PAIN [None]
  - PLATELET COUNT DECREASED [None]
  - PLATELET COUNT INCREASED [None]
